FAERS Safety Report 8611357-X (Version None)
Quarter: 2012Q3

REPORT INFORMATION
  Report Type: 
  Country: None (occurrence: None)
  Receive Date: 20120822
  Receipt Date: 20120629
  Transmission Date: 20120928
  Serious: Yes (Death, Hospitalization)
  Sender: FDA-Public Use
  Company Number: IT-CELGENEUS-083-21880-12070020

PATIENT

DRUGS (4)
  1. DEXAMETHASONE [Concomitant]
     Indication: NON-HODGKIN'S LYMPHOMA
     Route: 065
     Dates: start: 20101027, end: 20101116
  2. REVLIMID [Suspect]
     Dosage: 25 MILLIGRAM
     Route: 048
     Dates: start: 20101122, end: 20101212
  3. DEXAMETHASONE [Concomitant]
     Route: 065
     Dates: start: 20101122, end: 20101212
  4. REVLIMID [Suspect]
     Indication: NON-HODGKIN'S LYMPHOMA
     Dosage: 25 MILLIGRAM
     Route: 048
     Dates: start: 20101027, end: 20101116

REACTIONS (4)
  - DEATH [None]
  - SEPSIS [None]
  - DIARRHOEA [None]
  - PYREXIA [None]
